FAERS Safety Report 7376238-0 (Version None)
Quarter: 2011Q1

REPORT INFORMATION
  Report Type: 
  Country: None (occurrence: None)
  Receive Date: 20110325
  Receipt Date: 20110314
  Transmission Date: 20110831
  Serious: Yes (Hospitalization)
  Sender: FDA-Public Use
  Company Number: CH-BAYER-2011-022274

PATIENT
  Age: 84 Year
  Sex: Male

DRUGS (6)
  1. COVERSUM [Concomitant]
     Route: 048
  2. ASPIRIN [Suspect]
     Dosage: 100 MG, QD
     Route: 048
     Dates: end: 20101026
  3. PLAVIX [Suspect]
     Dosage: 1 DF, QD
     Route: 048
     Dates: end: 20101026
  4. BELOC ZOK [Concomitant]
     Route: 048
  5. SORTIS [Concomitant]
     Route: 048
  6. TRILEPTAL [Concomitant]
     Route: 048

REACTIONS (4)
  - MYOCARDIAL INFARCTION [None]
  - SHOCK HAEMORRHAGIC [None]
  - DUODENAL ULCER [None]
  - ANAEMIA [None]
